FAERS Safety Report 16327191 (Version 1)
Quarter: 2019Q2

REPORT INFORMATION
  Report Type: Spontaneous
  Country: US (occurrence: US)
  Receive Date: 20190517
  Receipt Date: 20190517
  Transmission Date: 20190711
  Serious: No
  Sender: FDA-Public Use
  Company Number: US-SHIRE-US201916038

PATIENT

DRUGS (1)
  1. XIIDRA [Suspect]
     Active Substance: LIFITEGRAST
     Indication: PRODUCT USED FOR UNKNOWN INDICATION
     Dosage: 1 GTT DROPS
     Route: 047
     Dates: start: 20190312, end: 20190312

REACTIONS (1)
  - Instillation site erythema [Recovered/Resolved]

NARRATIVE: CASE EVENT DATE: 20190312
